FAERS Safety Report 9629651 (Version 1)
Quarter: 2013Q4

REPORT INFORMATION
  Report Type: Spontaneous
  Country: US (occurrence: US)
  Receive Date: 20131017
  Receipt Date: 20131017
  Transmission Date: 20140711
  Serious: No
  Sender: FDA-Public Use
  Company Number: US-PFIZER INC-2013296100

PATIENT
  Age: 76 Year
  Sex: Female
  Weight: 77.1 kg

DRUGS (4)
  1. PREMARIN [Suspect]
     Indication: ATROPHIC VULVOVAGINITIS
     Dosage: 1 G, WEEKLY
     Route: 067
     Dates: start: 201207, end: 20131014
  2. LISINOPRIL [Concomitant]
     Indication: CARDIAC DISORDER
     Dosage: 10 MG, DAILY
  3. ATENOLOL [Concomitant]
     Indication: CARDIAC DISORDER
     Dosage: 125 MG, DAILY
  4. CRESTOR [Concomitant]
     Indication: CARDIAC DISORDER
     Dosage: 10 MG (HALF OF 20 MG PILL), DAILY

REACTIONS (1)
  - Abdominal pain [Unknown]
